FAERS Safety Report 6402193-3 (Version None)
Quarter: 2009Q4

REPORT INFORMATION
  Report Type: 
  Country: None (occurrence: None)
  Receive Date: 20091014
  Receipt Date: 20091014
  Transmission Date: 20100525
  Serious: Yes (Disabling)
  Sender: FDA-Public Use
  Company Number: None

PATIENT
  Age: 84 Year
  Sex: Male
  Weight: 83.9154 kg

DRUGS (1)
  1. LEVAQUIN [Suspect]
     Indication: TESTICULAR DISORDER
     Dosage: 500 MG 1 PILL PER DAY I TOOK 5 PILLS
     Dates: start: 20090609, end: 20090613

REACTIONS (2)
  - ABASIA [None]
  - BALANCE DISORDER [None]
